FAERS Safety Report 17195139 (Version 2)
Quarter: 2020Q1

REPORT INFORMATION
  Report Type: Spontaneous
  Country: IT (occurrence: IT)
  Receive Date: 20191224
  Receipt Date: 20200107
  Transmission Date: 20200409
  Serious: Yes (Other)
  Sender: FDA-Public Use
  Company Number: IT-JNJFOC-20191233090

PATIENT
  Age: 23 Year
  Sex: Male

DRUGS (2)
  1. IBUPROFEN. [Suspect]
     Active Substance: IBUPROFEN
     Indication: POST-TRAUMATIC PAIN
     Route: 048
     Dates: start: 20191107, end: 20191107
  2. SPIDIFEN [Suspect]
     Active Substance: IBUPROFEN ARGININE
     Indication: POST-TRAUMATIC PAIN
     Dosage: IN TOTAL
     Route: 048
     Dates: start: 20191107, end: 20191107

REACTIONS (3)
  - Malaise [Recovering/Resolving]
  - Nausea [Recovering/Resolving]
  - Dizziness [Recovering/Resolving]

NARRATIVE: CASE EVENT DATE: 20191107
